FAERS Safety Report 18177560 (Version 7)
Quarter: 2022Q1

REPORT INFORMATION
  Report Type: Spontaneous
  Country: US (occurrence: US)
  Receive Date: 20200820
  Receipt Date: 20220131
  Transmission Date: 20220423
  Serious: No
  Sender: FDA-Public Use
  Company Number: US-PFIZER INC-2020319647

PATIENT
  Age: 53 Year
  Sex: Female
  Weight: 108.86 kg

DRUGS (6)
  1. IBRANCE [Suspect]
     Active Substance: PALBOCICLIB
     Indication: Breast cancer female
     Dosage: 125 MG, CYCLIC (FOR 21 DAYS, FOLLLOWED BY 7 DAYS O REST, REPETAED EVERY 28 DAYS)
     Route: 048
     Dates: start: 20200803
  2. IBRANCE [Suspect]
     Active Substance: PALBOCICLIB
     Dosage: 1 DF (TAKE 1 TABLET BY MOUTH ONCE DAILY ON DAYS 1 TO 21, FOLLOWED BY 7 DAYS OF REST)
     Route: 048
  3. GLIPIZIDE [Concomitant]
     Active Substance: GLIPIZIDE
     Dosage: UNK
  4. STEGLATRO [Concomitant]
     Active Substance: ERTUGLIFLOZIN PIDOLATE
     Dosage: UNK
  5. GEMFIBROZIL [Concomitant]
     Active Substance: GEMFIBROZIL
     Dosage: UNK
  6. ATORVASTATIN CALCIUM [Concomitant]
     Active Substance: ATORVASTATIN CALCIUM
     Dosage: UNK

REACTIONS (8)
  - Product dose omission in error [Unknown]
  - Product dose omission issue [Unknown]
  - Epistaxis [Unknown]
  - Urine ketone body present [Unknown]
  - Mass [Unknown]
  - Swelling [Unknown]
  - Neck mass [Unknown]
  - Inflammation [Unknown]

NARRATIVE: CASE EVENT DATE: 20200101
